FAERS Safety Report 12846632 (Version 1)
Quarter: 2016Q4

REPORT INFORMATION
  Report Type: Spontaneous
  Country: DE (occurrence: DE)
  Receive Date: 20161014
  Receipt Date: 20161014
  Transmission Date: 20170207
  Serious: Yes (Hospitalization)
  Sender: FDA-Public Use
  Company Number: DE-AUROBINDO-AUR-APL-2016-12348

PATIENT
  Age: 29 Year
  Sex: Female
  Weight: 114 kg

DRUGS (3)
  1. SETRALINE 100MG [Suspect]
     Active Substance: SERTRALINE HYDROCHLORIDE
     Indication: DEPRESSION
     Dosage: 100 MG, DAILY
     Route: 048
     Dates: start: 20160418, end: 20160512
  2. RAMIPRIL 5MG [Suspect]
     Active Substance: RAMIPRIL
     Indication: HYPERTENSION
     Dosage: 5 MG, UNK
     Route: 048
     Dates: start: 20160411, end: 20160514
  3. HYDROCHLOROTHIAZIDE 25 MG [Suspect]
     Active Substance: HYDROCHLOROTHIAZIDE
     Indication: HYPERTENSION
     Dosage: 25 MG, UNK
     Route: 048
     Dates: start: 20160414, end: 20160514

REACTIONS (1)
  - Agranulocytosis [Recovering/Resolving]

NARRATIVE: CASE EVENT DATE: 20160510
